FAERS Safety Report 19039435 (Version 2)
Quarter: 2021Q2

REPORT INFORMATION
  Report Type: Spontaneous
  Country: GB (occurrence: GB)
  Receive Date: 20210322
  Receipt Date: 20210408
  Transmission Date: 20210717
  Serious: Yes (Other)
  Sender: FDA-Public Use
  Company Number: GB-ALNYLAM PHARMACEUTICALS, INC.-ALN-2021-000279

PATIENT

DRUGS (2)
  1. APIXABAN [Concomitant]
     Active Substance: APIXABAN
     Indication: PRODUCT USED FOR UNKNOWN INDICATION
  2. ONPATTRO [Suspect]
     Active Substance: PATISIRAN SODIUM
     Indication: HEREDITARY NEUROPATHIC AMYLOIDOSIS
     Dosage: 24 MILLIGRAM, Q3W
     Route: 042
     Dates: start: 2020

REACTIONS (8)
  - Pulmonary mass [Unknown]
  - Cardiac failure [Unknown]
  - Rash [Unknown]
  - Dyspnoea [Unknown]
  - Benign lung neoplasm [Unknown]
  - Pleural effusion [Unknown]
  - Oedema [Unknown]
  - Petechiae [Unknown]
